FAERS Safety Report 7739992-1 (Version None)
Quarter: 2011Q3

REPORT INFORMATION
  Report Type: 
  Country: None (occurrence: None)
  Receive Date: 20110909
  Receipt Date: 20110831
  Transmission Date: 20111222
  Serious: Yes (Hospitalization, Other)
  Sender: FDA-Public Use
  Company Number: DE-JNJFOC-20110902115

PATIENT
  Age: 27 Year
  Sex: Female
  Weight: 65 kg

DRUGS (1)
  1. NIZORAL [Suspect]
     Indication: TINEA VERSICOLOUR
     Route: 048
     Dates: start: 20110824, end: 20110824

REACTIONS (4)
  - ANAPHYLACTIC SHOCK [None]
  - ANGIOEDEMA [None]
  - INCORRECT ROUTE OF DRUG ADMINISTRATION [None]
  - BRONCHOSPASM [None]
